FAERS Safety Report 8349562-2 (Version None)
Quarter: 2012Q2

REPORT INFORMATION
  Report Type: 
  Country: None (occurrence: None)
  Receive Date: 20120510
  Receipt Date: 20120503
  Transmission Date: 20120825
  Serious: Yes (Death)
  Sender: FDA-Public Use
  Company Number: US-BAYER-2011-111081

PATIENT
  Age: 22 Year
  Sex: Female
  Weight: 81.633 kg

DRUGS (7)
  1. METFORMIN HCL [Concomitant]
     Indication: POLYCYSTIC OVARIES
     Dosage: 500 MG, BID
  2. WELLBUTRIN [Concomitant]
     Indication: DEPRESSION
     Dosage: 150 MG, DAILY
  3. SPIRONOLACTONE [Concomitant]
     Indication: POLYCYSTIC OVARIES
     Dosage: 25 MG 4 TABLETS EVERY MORNING
  4. YASMIN [Suspect]
     Dosage: UNK
     Dates: start: 20020506, end: 20030114
  5. ZOLOFT [Concomitant]
     Indication: DEPRESSION
     Dosage: 100 MG 1-1/2 TABLETS DAILY
  6. TRAZODONE HCL [Concomitant]
     Dosage: 50 MG, HS
  7. DOXYCYCLINE [Concomitant]
     Dosage: 100 MG, DAILY

REACTIONS (6)
  - PAIN [None]
  - INJURY [None]
  - ANXIETY [None]
  - PULMONARY EMBOLISM [None]
  - EMOTIONAL DISTRESS [None]
  - GENERAL PHYSICAL HEALTH DETERIORATION [None]
